FAERS Safety Report 10349955 (Version 2)
Quarter: 2014Q3

REPORT INFORMATION
  Report Type: Spontaneous
  Country: US (occurrence: US)
  Receive Date: 20140730
  Receipt Date: 20140908
  Transmission Date: 20150326
  Serious: No
  Sender: FDA-Public Use
  Company Number: US-009507513-1407USA005987

PATIENT
  Age: 21 Year
  Sex: Female
  Weight: 68.93 kg

DRUGS (2)
  1. NEXPLANON [Suspect]
     Active Substance: ETONOGESTREL
     Indication: CONTRACEPTION
     Dosage: 68 MG IMPLANT
     Route: 058
     Dates: start: 20140711
  2. NEXPLANON [Suspect]
     Active Substance: ETONOGESTREL
     Dosage: 68 MG/ONCE EVERY 3 YEARS
     Route: 058
     Dates: start: 20131112, end: 20140711

REACTIONS (3)
  - Headache [Recovered/Resolved]
  - Device breakage [Recovered/Resolved]
  - Nausea [Recovered/Resolved]

NARRATIVE: CASE EVENT DATE: 20140627
